FAERS Safety Report 7295283-7 (Version None)
Quarter: 2011Q1

REPORT INFORMATION
  Report Type: 
  Country: None (occurrence: None)
  Receive Date: 20110203
  Receipt Date: 20110118
  Transmission Date: 20110831
  Serious: Yes (Death)
  Sender: FDA-Public Use
  Company Number: B0694937A

PATIENT
  Age: 65 Year
  Sex: Male

DRUGS (8)
  1. PARACETAMOL (TORMULATON UNKRIDWN) (ACETAMINOPHEN) [Suspect]
     Dosage: ORAL
     Route: 048
  2. WARFARIN SODIUM [Suspect]
     Dosage: ORAL
     Route: 048
  3. PROPRANOLOL HCL [Suspect]
     Dosage: ORAL
     Route: 048
  4. VENLAFAXINE HCL [Suspect]
     Dosage: ORAL
     Route: 048
  5. ALPRAZOLAM [Suspect]
     Dosage: ORAL
     Route: 048
  6. LAMICTAL [Suspect]
     Dosage: ORAL
     Route: 048
  7. MODAFINIL [Suspect]
     Dosage: ORAL
     Route: 048
  8. DOXEPIN [Suspect]
     Dosage: ORAL
     Route: 048

REACTIONS (2)
  - CARDIO-RESPIRATORY ARREST [None]
  - COMPLETED SUICIDE [None]
